FAERS Safety Report 5126821-8 (Version None)
Quarter: 2006Q4

REPORT INFORMATION
  Report Type: 
  Country: None (occurrence: None)
  Receive Date: 20061010
  Receipt Date: 20060921
  Transmission Date: 20070319
  Serious: Yes (Hospitalization)
  Sender: FDA-Public Use
  Company Number: 163-21880-06080761

PATIENT
  Age: 62 Year
  Sex: Female

DRUGS (22)
  1. REVLIMID [Suspect]
     Indication: MULTIPLE MYELOMA
     Dosage: 10 MG, 1 IN 1 D, ORAL
     Route: 048
     Dates: start: 20060420, end: 20060701
  2. PREDNISONE TAB [Suspect]
     Indication: MULTIPLE MYELOMA
     Dosage: 30 MG, DAILY
     Dates: start: 20060701
  3. METFORMIN HCL [Concomitant]
  4. AVANDIA [Concomitant]
  5. NEXIUM [Concomitant]
  6. LOTREL [Concomitant]
  7. MORPHINE [Concomitant]
  8. DILAUDID [Concomitant]
  9. GLIPIZIDE [Concomitant]
  10. KCI [Concomitant]
  11. TOPROL-XL [Concomitant]
  12. DIOVAN [Concomitant]
  13. LASIX [Concomitant]
  14. OS-CAL (OS-CAL) [Concomitant]
  15. BIAXIN [Concomitant]
  16. DIGOXIN [Concomitant]
  17. CARDIZEM CD [Concomitant]
  18. MS CONTIN [Concomitant]
  19. PROTONIX [Concomitant]
  20. POTASSIUM (POTASSIUM) [Concomitant]
  21. COLACE (DOCUSATE SODIUM) [Concomitant]
  22. LOVENOX [Concomitant]

REACTIONS (15)
  - ABDOMINAL PAIN [None]
  - ABSCESS NECK [None]
  - ATRIAL FIBRILLATION [None]
  - BREAST MASS [None]
  - CONDITION AGGRAVATED [None]
  - DEHYDRATION [None]
  - DIABETES MELLITUS [None]
  - HYPOTENSION [None]
  - INDURATION [None]
  - INFLAMMATION [None]
  - KLEBSIELLA INFECTION [None]
  - LYMPHADENOPATHY [None]
  - MASS [None]
  - PLASMACYTOMA [None]
  - URINARY TRACT INFECTION BACTERIAL [None]
